FAERS Safety Report 21139385 (Version 6)
Quarter: 2023Q1

REPORT INFORMATION
  Report Type: Spontaneous
  Country: US (occurrence: US)
  Receive Date: 20220727
  Receipt Date: 20230307
  Transmission Date: 20230417
  Serious: Yes (Other)
  Sender: FDA-Public Use
  Company Number: US-PFIZER INC-PV202200031282

PATIENT
  Age: 76 Year
  Sex: Female

DRUGS (2)
  1. XELJANZ [Suspect]
     Active Substance: TOFACITINIB CITRATE
     Dosage: 1 DF, DAILY
     Route: 048
  2. XELJANZ [Suspect]
     Active Substance: TOFACITINIB CITRATE
     Dosage: 5 MG
     Dates: start: 202206

REACTIONS (12)
  - Neoplasm malignant [Unknown]
  - Gastrointestinal perforation [Unknown]
  - Decreased immune responsiveness [Unknown]
  - Inflammatory marker increased [Unknown]
  - Red blood cell count decreased [Unknown]
  - Illness [Unknown]
  - Confusional state [Unknown]
  - Insomnia [Unknown]
  - Arthralgia [Unknown]
  - Back pain [Unknown]
  - Pain in extremity [Unknown]
  - Joint swelling [Unknown]
